FAERS Safety Report 4599872-X (Version None)
Quarter: 2005Q1

REPORT INFORMATION
  Report Type: 
  Country: None (occurrence: None)
  Receive Date: 20050303
  Receipt Date: 20050222
  Transmission Date: 20050727
  Serious: Yes (Hospitalization)
  Sender: FDA-Public Use
  Company Number: 2004-10-1524

PATIENT
  Age: 60 Year
  Sex: Female

DRUGS (15)
  1. REBETOL [Suspect]
     Indication: HEPATITIS C
     Dosage: SEE IMAGE,  ORAL
     Route: 048
     Dates: start: 20030623, end: 20031104
  2. REBETOL [Suspect]
     Indication: HEPATITIS C
     Dosage: SEE IMAGE,  ORAL
     Route: 048
     Dates: start: 20031112, end: 20031119
  3. REBETOL [Suspect]
     Indication: HEPATITIS C
     Dosage: SEE IMAGE,  ORAL
     Route: 048
     Dates: start: 20030623, end: 20031211
  4. REBETOL [Suspect]
     Indication: HEPATITIS C
     Dosage: SEE IMAGE,  ORAL
     Route: 048
     Dates: start: 20031203, end: 20031211
  5. INTRON A [Suspect]
     Indication: HEPATITIS C
     Dosage: 6 MIU TIW INTRAMUSCULAR
     Route: 030
     Dates: start: 20030623, end: 20041018
  6. ADALAT [Concomitant]
  7. DIOVAN [Concomitant]
  8. BISOPROLOL FUMARATE [Concomitant]
  9. CONIEL (BENIDIPINE HCL) [Concomitant]
  10. MICARDIS [Concomitant]
  11. KEBERA G STRONG [Concomitant]
  12. STRONGER NEO MINOPHAGEN C [Concomitant]
  13. URSO TABLETS [Concomitant]
  14. LIPOVAS TABLETS [Concomitant]
  15. PRAVASTATIN SODIUM TABLETS [Concomitant]

REACTIONS (4)
  - ANAEMIA [None]
  - CEREBRAL HAEMORRHAGE [None]
  - HYPERTENSION [None]
  - PLATELET COUNT DECREASED [None]
